FAERS Safety Report 5871823-7 (Version None)
Quarter: 2008Q3

REPORT INFORMATION
  Report Type: 
  Country: None (occurrence: None)
  Receive Date: 20080905
  Receipt Date: 20080903
  Transmission Date: 20090109
  Serious: Yes (Death, Other)
  Sender: FDA-Public Use
  Company Number: JP-BOEHRINGER INGELHEIM GMBH, GERMANY-2008-DE-05247GD

PATIENT
  Age: 82 Year
  Sex: Male

DRUGS (4)
  1. MELOXICAM [Suspect]
     Dates: start: 20070713, end: 20070731
  2. WARFARIN SODIUM [Suspect]
     Indication: JUGULAR VEIN THROMBOSIS
  3. OMEPRAZOLE [Concomitant]
  4. HEPARIN SODIUM [Concomitant]

REACTIONS (4)
  - COAGULATION TEST ABNORMAL [None]
  - DRUG INTERACTION [None]
  - PULMONARY EMBOLISM [None]
  - SMALL INTESTINE CARCINOMA [None]
